FAERS Safety Report 19926765 (Version 1)
Quarter: 2021Q4

REPORT INFORMATION
  Report Type: Report from Study
  Country: None (occurrence: US)
  Receive Date: 20211007
  Receipt Date: 20211007
  Transmission Date: 20220303
  Serious: Yes (Other)
  Sender: FDA-Public Use
  Company Number: US-ABBVIE-21K-163-3876242-00

PATIENT
  Sex: Female
  Weight: 52 kg

DRUGS (18)
  1. HUMIRA [Suspect]
     Active Substance: ADALIMUMAB
     Indication: Rheumatoid arthritis
     Route: 058
  2. LASIX [Suspect]
     Active Substance: FUROSEMIDE
     Indication: Peripheral swelling
     Route: 065
     Dates: end: 2021
  3. LEVOTHYROXINE [Concomitant]
     Active Substance: LEVOTHYROXINE
     Indication: Thyroid hormone replacement therapy
     Route: 065
  4. METHOTREXATE [Concomitant]
     Active Substance: METHOTREXATE
     Indication: Rheumatoid arthritis
     Route: 048
  5. FOLIC ACID [Concomitant]
     Active Substance: FOLIC ACID
     Indication: Vitamin supplementation
     Route: 048
  6. LOSARTAN [Concomitant]
     Active Substance: LOSARTAN
     Indication: Hypertension
     Route: 048
  7. HYDROCHLOROTHIAZIDE\TRIAMTERENE [Concomitant]
     Active Substance: HYDROCHLOROTHIAZIDE\TRIAMTERENE
     Indication: Diuretic therapy
     Route: 065
  8. ASPIRIN [Concomitant]
     Active Substance: ASPIRIN
     Indication: Anticoagulant therapy
     Route: 065
  9. OXYBUTYNIN. [Concomitant]
     Active Substance: OXYBUTYNIN CHLORIDE
     Indication: Bladder disorder
     Route: 048
  10. ACETAMINOPHEN [Concomitant]
     Active Substance: ACETAMINOPHEN
     Indication: Arthritis
     Route: 065
  11. ACETAMINOPHEN [Concomitant]
     Active Substance: ACETAMINOPHEN
     Indication: Arthralgia
  12. RESTASIS [Concomitant]
     Active Substance: CYCLOSPORINE
     Indication: Dry eye
     Route: 065
  13. FUROSEMIDE [Concomitant]
     Active Substance: FUROSEMIDE
     Indication: Product used for unknown indication
     Route: 048
  14. VITAMIN D [Concomitant]
     Active Substance: VITAMIN D NOS
     Indication: Product used for unknown indication
     Route: 065
  15. TIZANIDINE [Concomitant]
     Active Substance: TIZANIDINE
     Indication: Hidradenitis
     Route: 048
  16. SOFTNER [Concomitant]
     Indication: Product used for unknown indication
     Route: 065
  17. MODERNA COVID-19 VACCINE [Concomitant]
     Active Substance: CX-024414
     Indication: COVID-19 immunisation
     Route: 030
     Dates: start: 20210120, end: 20210120
  18. MODERNA COVID-19 VACCINE [Concomitant]
     Active Substance: CX-024414
     Route: 030
     Dates: start: 20210220, end: 20210220

REACTIONS (23)
  - Basal cell carcinoma [Not Recovered/Not Resolved]
  - Synovial rupture [Unknown]
  - Loss of consciousness [Unknown]
  - Muscular weakness [Unknown]
  - Dehydration [Unknown]
  - Oedema [Not Recovered/Not Resolved]
  - Asthenia [Unknown]
  - Heart rate decreased [Unknown]
  - Fall [Recovering/Resolving]
  - Sciatica [Recovering/Resolving]
  - Loss of personal independence in daily activities [Recovering/Resolving]
  - Synovial cyst [Recovered/Resolved]
  - Varicose vein operation [Recovered/Resolved]
  - Dizziness [Unknown]
  - Pain [Unknown]
  - Impaired healing [Not Recovered/Not Resolved]
  - Arthropod sting [Unknown]
  - Pain [Unknown]
  - Syncope [Unknown]
  - Oedema peripheral [Unknown]
  - Skin disorder [Unknown]
  - Cardiovascular disorder [Unknown]
  - Scoliosis [Unknown]

NARRATIVE: CASE EVENT DATE: 20190101
